FAERS Safety Report 16940873 (Version 1)
Quarter: 2019Q4

REPORT INFORMATION
  Report Type: Spontaneous
  Country: GB (occurrence: GB)
  Receive Date: 20191021
  Receipt Date: 20191021
  Transmission Date: 20200122
  Serious: Yes (Other)
  Sender: FDA-Public Use
  Company Number: GB-MYLANLABS-2019M1098081

PATIENT
  Age: 77 Year
  Sex: Female
  Weight: 79 kg

DRUGS (18)
  1. PROCHLORPERAZINE. [Concomitant]
     Active Substance: PROCHLORPERAZINE
     Dosage: 1 DOSAGE FORM 1 BD, PRN
     Dates: start: 20190726
  2. ONDANSETRON [Concomitant]
     Active Substance: ONDANSETRON
     Dosage: 1 DOSAGE FORM, PRN
     Dates: start: 20190715, end: 20190716
  3. OMEPRAZOLE. [Concomitant]
     Active Substance: OMEPRAZOLE
     Dosage: 1 DOSAGE FORM, QD
     Dates: start: 20180613
  4. ACIDEX                             /01521901/ [Concomitant]
     Active Substance: CALCIUM CARBONATE\SODIUM ALGINATE\SODIUM BICARBONATE
     Dosage: 40 MILLILITER AFTER MEALS AND BEFORE BED, QD
     Dates: start: 20190321
  5. PREDNISOLONE. [Concomitant]
     Active Substance: PREDNISOLONE
     Dosage: 8 DOSAGE FORM FOR 5 DAYS, QD
     Dates: start: 20190531, end: 20190605
  6. PREGABALIN. [Concomitant]
     Active Substance: PREGABALIN
     Dosage: 3 DOSAGE FORM, QD
     Dates: start: 20161215
  7. DOXAZOSIN [Suspect]
     Active Substance: DOXAZOSIN MESYLATE
     Indication: PRODUCT USED FOR UNKNOWN INDICATION
     Dosage: 1 MILLIGRAM AT NIGHT, QD
     Route: 065
     Dates: start: 20190807
  8. RIVAROXABAN [Concomitant]
     Active Substance: RIVAROXABAN
     Dosage: 1 DOSAGE FORM, QD
     Dates: start: 20190226
  9. AMOXICILLIN. [Concomitant]
     Active Substance: AMOXICILLIN
     Dosage: 3 DOSAGE FORM, QD
     Dates: start: 20190531, end: 20190607
  10. SALBUTAMOL [Concomitant]
     Active Substance: ALBUTEROL
     Dosage: 2 DOSAGE FORM, PRN
     Dates: start: 20190318
  11. FLUCONAZOLE. [Concomitant]
     Active Substance: FLUCONAZOLE
     Dosage: PRN (USE AS DIRECTED)
     Dates: start: 20190715, end: 20190722
  12. CINNARIZINE [Concomitant]
     Active Substance: CINNARIZINE
     Dosage: 1 DOSAGE FORM 1 BD
     Dates: start: 20190730, end: 20190814
  13. MOMETASONE [Concomitant]
     Active Substance: MOMETASONE
     Dosage: 2 DOSAGE FORM INTO EACH NOSTRIL, QD
     Route: 045
     Dates: start: 20190701, end: 20190805
  14. INVITA D3 [Concomitant]
     Dosage: DRINK THE CONTENTS OF ONE AMPOULE
     Dates: start: 20181207
  15. INCRUSE ELLIPTA [Concomitant]
     Active Substance: UMECLIDINIUM BROMIDE
     Indication: CHRONIC OBSTRUCTIVE PULMONARY DISEASE
     Dosage: 1 DOSAGE FORM, QD
     Route: 055
     Dates: start: 20181102
  16. IRBESARTAN. [Concomitant]
     Active Substance: IRBESARTAN
     Dosage: 1 DOSAGE FORM, QD
     Dates: start: 20180731
  17. DIAZEPAM. [Concomitant]
     Active Substance: DIAZEPAM
     Dosage: 1 DOSAGE FORM 1 BD, PRN
     Dates: start: 20190531, end: 20190614
  18. DOXYCYCLINE. [Concomitant]
     Active Substance: DOXYCYCLINE
     Dosage: TAKE TWO TABLETS NOW AND THEN ONE A DAY
     Dates: start: 20190725, end: 20190801

REACTIONS (1)
  - Cystitis [Recovered/Resolved]

NARRATIVE: CASE EVENT DATE: 20190814
